FAERS Safety Report 5907176-5 (Version None)
Quarter: 2008Q4

REPORT INFORMATION
  Report Type: 
  Country: None (occurrence: None)
  Receive Date: 20081003
  Receipt Date: 20080630
  Transmission Date: 20090506
  Serious: Yes (Death, Hospitalization)
  Sender: FDA-Public Use
  Company Number: JP-JNJFOC-20081000242

PATIENT
  Sex: Male

DRUGS (14)
  1. LOPEMIN [Suspect]
     Indication: IRRITABLE BOWEL SYNDROME
     Route: 048
  2. SEIBULE [Suspect]
     Indication: DIABETES MELLITUS
     Route: 048
  3. POLYCARBOPHIL CALCIUM [Suspect]
     Indication: DRUG USE FOR UNKNOWN INDICATION
     Route: 048
  4. LANSOPRAZOLE [Concomitant]
     Indication: REFLUX OESOPHAGITIS
     Route: 048
  5. ARTIST [Concomitant]
     Indication: CARDIAC FAILURE
     Route: 048
  6. ACECOL [Concomitant]
     Indication: CARDIAC FAILURE
     Route: 048
  7. ANCARON [Concomitant]
     Indication: CARDIAC FAILURE
     Route: 048
  8. ASPIRIN [Concomitant]
     Indication: MYOCARDIAL INFARCTION
     Route: 048
  9. PLAVIX [Concomitant]
     Indication: CARDIAC FAILURE
     Route: 048
  10. LASIX [Concomitant]
     Indication: CARDIAC FAILURE
     Route: 048
  11. ITAVASTATIN [Concomitant]
     Indication: HYPERLIPIDAEMIA
     Route: 048
  12. FERROMIA [Concomitant]
     Indication: IRON DEFICIENCY ANAEMIA
     Route: 048
  13. MIYARI BACTERIA [Concomitant]
     Indication: IRRITABLE BOWEL SYNDROME
     Route: 048
  14. CALCIUM POLYSTYRENE SULFONATE [Concomitant]
     Indication: HYPERKALAEMIA
     Route: 048

REACTIONS (6)
  - ABDOMINAL PAIN [None]
  - BODY TEMPERATURE INCREASED [None]
  - CARDIAC FAILURE [None]
  - NAUSEA [None]
  - PNEUMATOSIS INTESTINALIS [None]
  - VOMITING [None]
